FAERS Safety Report 11417398 (Version 3)
Quarter: 2015Q4

REPORT INFORMATION
  Report Type: Report from Study
  Country: CA (occurrence: CA)
  Receive Date: 20150825
  Receipt Date: 20151012
  Transmission Date: 20160304
  Serious: Yes (Hospitalization)
  Sender: FDA-Public Use
  Company Number: PHHY2015CA101333

PATIENT
  Age: 55 Year
  Sex: Female

DRUGS (2)
  1. SIGNIFOR [Suspect]
     Active Substance: PASIREOTIDE
     Indication: PITUITARY-DEPENDENT CUSHING^S SYNDROME
     Dosage: 0.6 MG, BID
     Route: 058
     Dates: start: 20150716, end: 20150925
  2. SIGNIFOR [Suspect]
     Active Substance: PASIREOTIDE
     Dosage: 0.6 MG, TID
     Route: 058

REACTIONS (11)
  - Blood cortisol abnormal [Unknown]
  - Blood cortisol increased [Unknown]
  - Seizure [Unknown]
  - Gait disturbance [Unknown]
  - Drug ineffective [Unknown]
  - Vomiting [Unknown]
  - Nausea [Unknown]
  - Blood glucose increased [Unknown]
  - Malaise [Unknown]
  - Blood cortisol decreased [Unknown]
  - Asthenia [Unknown]

NARRATIVE: CASE EVENT DATE: 20150818
